FAERS Safety Report 5363528-6 (Version None)
Quarter: 2007Q2

REPORT INFORMATION
  Report Type: 
  Country: None (occurrence: None)
  Receive Date: 20070620
  Receipt Date: 20070611
  Transmission Date: 20071010
  Serious: Yes (Hospitalization)
  Sender: FDA-Public Use
  Company Number: US-GENENTECH-239282

PATIENT
  Sex: Male
  Weight: 64.399 kg

DRUGS (17)
  1. BEVACIZUMAB [Suspect]
     Indication: COLON CANCER METASTATIC
     Dosage: 330 MG, Q2W
     Route: 042
     Dates: start: 20061101, end: 20070313
  2. CETUXIMAB [Suspect]
     Indication: COLON CANCER METASTATIC
     Dosage: 440 MG, 1/WEEK
     Route: 042
     Dates: start: 20061101, end: 20070313
  3. FLUOROURACIL [Suspect]
     Indication: COLON CANCER METASTATIC
     Dosage: 704 MG, UNK
     Route: 042
     Dates: start: 20070306, end: 20070313
  4. LEUCOVORIN CALCIUM [Suspect]
     Indication: COLON CANCER METASTATIC
     Dosage: 704 MG, UNK
     Route: 042
     Dates: start: 20070306, end: 20070313
  5. FOSAMAX [Concomitant]
     Indication: DRUG USE FOR UNKNOWN INDICATION
  6. ZOCOR [Concomitant]
     Indication: DRUG USE FOR UNKNOWN INDICATION
  7. TOPROL-XL [Concomitant]
  8. ENALAPRIL [Concomitant]
     Indication: DRUG USE FOR UNKNOWN INDICATION
  9. AMARYL [Concomitant]
     Indication: DRUG USE FOR UNKNOWN INDICATION
  10. TERAZOSIN HCL [Concomitant]
     Indication: DRUG USE FOR UNKNOWN INDICATION
  11. FUROSEMIDE [Concomitant]
     Indication: DRUG USE FOR UNKNOWN INDICATION
  12. METFORMIN HCL [Concomitant]
     Indication: DRUG USE FOR UNKNOWN INDICATION
  13. ASPIRIN [Concomitant]
     Indication: DRUG USE FOR UNKNOWN INDICATION
  14. CENTRUM SILVER [Concomitant]
     Indication: DRUG USE FOR UNKNOWN INDICATION
  15. CALTRATE [Concomitant]
  16. REQUIP [Concomitant]
     Indication: DRUG USE FOR UNKNOWN INDICATION
  17. REGULAR INSULIN [Concomitant]
     Indication: DRUG USE FOR UNKNOWN INDICATION

REACTIONS (1)
  - PLEURAL EFFUSION [None]
